FAERS Safety Report 21631376 (Version 1)
Quarter: 2022Q4

REPORT INFORMATION
  Report Type: Spontaneous
  Country: NO (occurrence: NO)
  Receive Date: 20221123
  Receipt Date: 20221123
  Transmission Date: 20230112
  Serious: Yes (Other)
  Sender: FDA-Public Use
  Company Number: NO-ORGANON-O2211NOR001913

PATIENT
  Sex: Female

DRUGS (1)
  1. NEXPLANON [Suspect]
     Active Substance: ETONOGESTREL
     Dosage: 1 IMPLANT IN THE ARM
     Route: 059

REACTIONS (3)
  - Device expulsion [Unknown]
  - Implant site infection [Not Recovered/Not Resolved]
  - Application site wound [Not Recovered/Not Resolved]
